FAERS Safety Report 10779630 (Version 1)
Quarter: 2015Q1

REPORT INFORMATION
  Report Type: Spontaneous
  Country: US (occurrence: US)
  Receive Date: 20150210
  Receipt Date: 20150210
  Transmission Date: 20150721
  Serious: Yes (Disabling)
  Sender: FDA-Public Use
  Company Number: US-AUROBINDO-AUR-APL-2015-00942

PATIENT
  Age: 54 Year
  Sex: Female

DRUGS (3)
  1. RANOLAZINE [Suspect]
     Active Substance: RANOLAZINE
     Indication: ANGINA PECTORIS
     Dosage: 500 MG, TWO TIMES A DAY
     Route: 065
  2. RANOLAZINE [Suspect]
     Active Substance: RANOLAZINE
     Dosage: 1000 MG, TWO TIMES A DAY
     Route: 065
  3. SIMVASTATIN 20MG [Suspect]
     Active Substance: SIMVASTATIN
     Indication: DYSLIPIDAEMIA
     Dosage: 20 MG, DAILY
     Route: 065

REACTIONS (10)
  - Myopathy [Recovered/Resolved]
  - Myalgia [Recovered/Resolved]
  - Carnitine deficiency [Recovered/Resolved]
  - Gene mutation [Recovered/Resolved]
  - Fatigue [Recovered/Resolved]
  - Wheelchair user [Recovered/Resolved]
  - Ubiquinone decreased [Recovered/Resolved]
  - Mitochondrial DNA mutation [Recovered/Resolved]
  - Gait disturbance [Recovered/Resolved]
  - Muscular weakness [Recovered/Resolved]
